FAERS Safety Report 13250250 (Version 1)
Quarter: 2017Q1

REPORT INFORMATION
  Report Type: Spontaneous
  Country: US (occurrence: US)
  Receive Date: 20170218
  Receipt Date: 20170218
  Transmission Date: 20170428
  Serious: No
  Sender: FDA-Public Use
  Company Number: US-TEVA-727169ACC

PATIENT
  Age: 27 Year
  Sex: Female

DRUGS (4)
  1. KLONOPIN [Concomitant]
     Active Substance: CLONAZEPAM
  2. TRINESSALO [Concomitant]
  3. ZOFRAN [Concomitant]
     Active Substance: ONDANSETRON HYDROCHLORIDE
  4. COPAXONE [Suspect]
     Active Substance: GLATIRAMER ACETATE
     Indication: MULTIPLE SCLEROSIS
     Route: 058
     Dates: start: 20160506

REACTIONS (5)
  - Nausea [Unknown]
  - Hot flush [Unknown]
  - Diarrhoea [Recovered/Resolved]
  - Expired product administered [Unknown]
  - Protein urine present [Unknown]

NARRATIVE: CASE EVENT DATE: 20161117
